FAERS Safety Report 16650643 (Version 4)
Quarter: 2019Q3

REPORT INFORMATION
  Report Type: Report from Study
  Country: BR (occurrence: BR)
  Receive Date: 20190731
  Receipt Date: 20190925
  Transmission Date: 20191004
  Serious: Yes (Other)
  Sender: FDA-Public Use
  Company Number: BR-BIOGEN-2019BI00768032

PATIENT
  Sex: Female
  Weight: 60 kg

DRUGS (1)
  1. AVONEX [Suspect]
     Active Substance: INTERFERON BETA-1A
     Indication: MULTIPLE SCLEROSIS
     Route: 030
     Dates: start: 20130326, end: 20140815

REACTIONS (8)
  - Ischaemia [Unknown]
  - Restless legs syndrome [Not Recovered/Not Resolved]
  - Pain in extremity [Unknown]
  - Diplegia [Unknown]
  - Product administered at inappropriate site [Recovered/Resolved]
  - Multiple sclerosis relapse [Recovered/Resolved]
  - Injection site nodule [Recovered/Resolved]
  - Sensory loss [Not Recovered/Not Resolved]
